FAERS Safety Report 11377994 (Version 2)
Quarter: 2015Q3

REPORT INFORMATION
  Report Type: Spontaneous
  Country: US (occurrence: US)
  Receive Date: 20150811
  Receipt Date: 20150903
  Transmission Date: 20151125
  Serious: No
  Sender: FDA-Public Use
  Company Number: US-ELI_LILLY_AND_COMPANY-US200912005250

PATIENT
  Sex: Female

DRUGS (3)
  1. HUMULIN R [Suspect]
     Active Substance: INSULIN HUMAN
  2. HUMALOG [Suspect]
     Active Substance: INSULIN LISPRO
  3. HUMULIN N [Suspect]
     Active Substance: INSULIN HUMAN

REACTIONS (5)
  - Blood glucose increased [Unknown]
  - Drug dispensing error [Unknown]
  - Drug prescribing error [Unknown]
  - Blood glucose decreased [Unknown]
  - Wrong drug administered [Unknown]
